FAERS Safety Report 11497899 (Version 2)
Quarter: 2016Q2

REPORT INFORMATION
  Report Type: Report from Study
  Country: BR (occurrence: BR)
  Receive Date: 20150911
  Receipt Date: 20160414
  Transmission Date: 20160815
  Serious: Yes (Other)
  Sender: FDA-Public Use
  Company Number: BR-ABBVIE-13P-020-1064856-00

PATIENT
  Sex: Male
  Weight: 85 kg

DRUGS (2)
  1. AZULFIDINE [Concomitant]
     Active Substance: SULFASALAZINE
     Indication: ANKYLOSING SPONDYLITIS
     Route: 048
  2. HUMIRA [Suspect]
     Active Substance: ADALIMUMAB
     Indication: ANKYLOSING SPONDYLITIS
     Route: 058
     Dates: start: 20120509

REACTIONS (8)
  - Pleural adhesion [Recovered/Resolved]
  - Arthritis [Recovering/Resolving]
  - Asthenia [Recovered/Resolved]
  - Lung cyst [Recovered/Resolved]
  - Pyrexia [Recovered/Resolved]
  - Disease complication [Unknown]
  - Pulmonary oedema [Recovered/Resolved]
  - Pneumonia [Unknown]

NARRATIVE: CASE EVENT DATE: 2012
